FAERS Safety Report 4817993-0 (Version None)
Quarter: 2005Q4

REPORT INFORMATION
  Report Type: 
  Country: None (occurrence: None)
  Receive Date: 20051102
  Receipt Date: 20051025
  Transmission Date: 20060501
  Serious: Yes (Other)
  Sender: FDA-Public Use
  Company Number: PHBS2005TR15705

PATIENT
  Age: 67 Year
  Sex: Female
  Weight: 70 kg

DRUGS (9)
  1. FORADIL [Suspect]
     Dosage: 1 DF, BID
     Dates: start: 20051011, end: 20051011
  2. MONODUR [Concomitant]
  3. COZAAR [Concomitant]
  4. KAPTORIL [Concomitant]
  5. WARFARIN SODIUM [Concomitant]
  6. LASIX [Concomitant]
  7. TEBOKAN [Concomitant]
  8. SIMVASTATIN [Concomitant]
  9. DIGOXIN [Concomitant]

REACTIONS (3)
  - BLOOD PRESSURE INCREASED [None]
  - HEADACHE [None]
  - VERTIGO [None]
